FAERS Safety Report 4998259-5 (Version None)
Quarter: 2006Q2

REPORT INFORMATION
  Report Type: 
  Country: None (occurrence: None)
  Receive Date: 20060508
  Receipt Date: 20060421
  Transmission Date: 20061013
  Serious: Yes (Other)
  Sender: FDA-Public Use
  Company Number: DSA_28088_2006

PATIENT
  Age: 89 Year
  Sex: Female
  Weight: 58.9676 kg

DRUGS (4)
  1. ATIVAN [Suspect]
     Indication: ANXIETY
     Dosage: DF QHS PO
     Route: 048
     Dates: start: 20020101
  2. ATIVAN [Suspect]
     Indication: INSOMNIA
     Dosage: DF QHS PO
     Route: 048
     Dates: start: 20020101
  3. TIAZAC [Concomitant]
  4. TOPROL-XL [Concomitant]

REACTIONS (13)
  - ABNORMAL DREAMS [None]
  - ASTHENIA [None]
  - DIZZINESS [None]
  - DRY MOUTH [None]
  - DYSPNOEA [None]
  - FALL [None]
  - FATIGUE [None]
  - GAIT DISTURBANCE [None]
  - HEART RATE IRREGULAR [None]
  - NASAL DISCOMFORT [None]
  - PHARYNGOLARYNGEAL PAIN [None]
  - POLLAKIURIA [None]
  - VISION BLURRED [None]
